FAERS Safety Report 6718298-3 (Version None)
Quarter: 2010Q2

REPORT INFORMATION
  Report Type: 
  Country: None (occurrence: None)
  Receive Date: 20100505
  Receipt Date: 20100420
  Transmission Date: 20101027
  Serious: Yes (Death, Other)
  Sender: FDA-Public Use
  Company Number: 2010SCPR000533

PATIENT
  Age: 82 Year
  Sex: Female

DRUGS (14)
  1. HYDROXYUREA [Suspect]
     Indication: MYELODYSPLASTIC SYNDROME
  2. METORPROLOL (METOPROLOL) [Concomitant]
  3. HYDROXYCHLOROQUINE SULFATE [Concomitant]
  4. AZATHIOPRINE [Concomitant]
  5. PREDNISONE TAB [Concomitant]
  6. TRIAMTERENE (TRIAMTERENE) [Concomitant]
  7. HYDROCHLOROTHIAZIDE [Concomitant]
  8. WARFARIN SODIUM [Concomitant]
  9. PAROXETINE MESILATE (PAROXETINE MESILATE) [Concomitant]
  10. COLESTIPOL (COLESTIPOL) [Concomitant]
  11. LANSOPRAZOLE [Concomitant]
  12. ALLOPURINOL SODIUM (ALLOPURINOL SODIUM) [Concomitant]
  13. PHOSPHORUS (PHOSPHORUS) [Concomitant]
  14. MULTIVITAMINS (ASCORBIC ACID, ERGOCALCIFEROL, FOLIC ACID, NICOTINAMIDE [Concomitant]

REACTIONS (19)
  - ALDOLASE INCREASED [None]
  - DERMATOMYOSITIS [None]
  - DISEASE COMPLICATION [None]
  - DISEASE PROGRESSION [None]
  - DRY SKIN [None]
  - ERYTHEMA [None]
  - HYPERGAMMAGLOBULINAEMIA [None]
  - MYELODYSPLASTIC SYNDROME [None]
  - PHOTOSENSITIVITY REACTION [None]
  - POIKILODERMA [None]
  - RASH [None]
  - RHEUMATOID FACTOR INCREASED [None]
  - SKIN ATROPHY [None]
  - SKIN PLAQUE [None]
  - SKIN ULCER [None]
  - SQUAMOUS CELL CARCINOMA [None]
  - SQUAMOUS CELL CARCINOMA OF SKIN [None]
  - ULCER [None]
  - XEROSIS [None]
